FAERS Safety Report 11619996 (Version 3)
Quarter: 2015Q4

REPORT INFORMATION
  Report Type: Spontaneous
  Country: IT (occurrence: IT)
  Receive Date: 20151012
  Receipt Date: 20151023
  Transmission Date: 20160304
  Serious: Yes (Hospitalization)
  Sender: FDA-Public Use
  Company Number: PHHY2015IT121382

PATIENT
  Age: 62 Year
  Sex: Female

DRUGS (6)
  1. CLOPIXOL                           /00876701/ [Concomitant]
     Active Substance: ZUCLOPENTHIXOL ACETATE
     Indication: PRODUCT USED FOR UNKNOWN INDICATION
     Dosage: 1 DF
     Route: 030
  2. TAVOR [Suspect]
     Active Substance: LORAZEPAM
     Indication: ANXIETY
     Dosage: 2.5 MG (TOTAL)
     Route: 048
     Dates: start: 20150801, end: 20150801
  3. VOLTAREN [Suspect]
     Active Substance: DICLOFENAC SODIUM
     Indication: BACK PAIN
     Dosage: 150 MG, (TOTAL)
     Route: 048
     Dates: start: 20150801, end: 20150801
  4. VALSARTAN. [Concomitant]
     Active Substance: VALSARTAN
     Indication: HYPERTENSION
     Dosage: 80 MG
     Route: 048
  5. BRUFEN//IBUPROFEN [Suspect]
     Active Substance: IBUPROFEN
     Indication: BACK PAIN
     Dosage: 600 MG, (TOTAL)
     Route: 048
     Dates: start: 20150801, end: 20150801
  6. TALOFEN [Suspect]
     Active Substance: PROMAZINE HYDROCHLORIDE
     Indication: ANXIETY
     Dosage: 40 DRP, TOTAL (4G/100ML)
     Route: 048
     Dates: start: 20150801, end: 20150801

REACTIONS (2)
  - Asthenia [Recovering/Resolving]
  - Drug abuse [Recovering/Resolving]

NARRATIVE: CASE EVENT DATE: 20150801
